FAERS Safety Report 4742324-4 (Version None)
Quarter: 2005Q3

REPORT INFORMATION
  Report Type: 
  Country: None (occurrence: None)
  Receive Date: 20050811
  Receipt Date: 20050406
  Transmission Date: 20060218
  Serious: No
  Sender: FDA-Public Use
  Company Number: US-GLAXOSMITHKLINE-A0553004A

PATIENT
  Age: 60 Year
  Sex: Female

DRUGS (3)
  1. PAXIL CR [Suspect]
     Indication: DEPRESSION
     Dosage: 12.5MG PER DAY
     Route: 048
  2. VALIUM [Concomitant]
  3. BLOOD PRESSURE MEDICATION [Concomitant]

REACTIONS (6)
  - ANOREXIA [None]
  - DIZZINESS [None]
  - DYSGEUSIA [None]
  - ELECTRIC SHOCK [None]
  - FEELING ABNORMAL [None]
  - WEIGHT DECREASED [None]
